FAERS Safety Report 5452871-8 (Version None)
Quarter: 2007Q3

REPORT INFORMATION
  Report Type: 
  Country: None (occurrence: None)
  Receive Date: 20070914
  Receipt Date: 20070910
  Transmission Date: 20080115
  Serious: Yes (Death, Hospitalization, Disabling)
  Sender: FDA-Public Use
  Company Number: A0619260A

PATIENT
  Age: 68 Year
  Sex: Male

DRUGS (3)
  1. AVANDIA [Suspect]
     Route: 048
     Dates: start: 20010710, end: 20010818
  2. INSULIN [Concomitant]
  3. BLOOD PRESSURE MEDICATION [Concomitant]

REACTIONS (23)
  - ACUTE MYOCARDIAL INFARCTION [None]
  - ANAEMIA [None]
  - ANXIETY [None]
  - AORTIC VALVE DISEASE [None]
  - CARDIAC FAILURE CONGESTIVE [None]
  - CHRONIC OBSTRUCTIVE PULMONARY DISEASE [None]
  - CORONARY ARTERY DISEASE [None]
  - DEPRESSION [None]
  - DYSPNOEA [None]
  - EJECTION FRACTION DECREASED [None]
  - FATIGUE [None]
  - GENERAL PHYSICAL HEALTH DETERIORATION [None]
  - HAEMATOCHEZIA [None]
  - HYPERHIDROSIS [None]
  - INFECTION [None]
  - LUNG INJURY [None]
  - PALLOR [None]
  - PERICARDIAL EFFUSION [None]
  - PITTING OEDEMA [None]
  - PNEUMONIA [None]
  - PYREXIA [None]
  - RENAL FAILURE [None]
  - WEIGHT INCREASED [None]
